FAERS Safety Report 12489382 (Version 4)
Quarter: 2017Q4

REPORT INFORMATION
  Report Type: Report from Study
  Country: AR (occurrence: AR)
  Receive Date: 20160622
  Receipt Date: 20171120
  Transmission Date: 20180320
  Serious: Yes (Death, Other)
  Sender: FDA-Public Use
  Company Number: PHHY2016AR082702

PATIENT
  Age: 81 Year
  Sex: Male

DRUGS (1)
  1. ENTRESTO [Suspect]
     Active Substance: SACUBITRIL\VALSARTAN
     Indication: CARDIAC FAILURE
     Dosage: 0.5 DF (50 MG), UNK
     Route: 065
     Dates: start: 20160611

REACTIONS (12)
  - Hypotension [Fatal]
  - Diabetes mellitus [Fatal]
  - Cardiac failure [Unknown]
  - Gastrointestinal haemorrhage [Fatal]
  - Hypersomnia [Unknown]
  - General physical health deterioration [Unknown]
  - Wrong technique in product usage process [Unknown]
  - Scrotal haematocoele [Fatal]
  - Fatigue [Unknown]
  - Anaemia [Fatal]
  - Epistaxis [Fatal]
  - Feeling abnormal [Unknown]

NARRATIVE: CASE EVENT DATE: 20160611
